FAERS Safety Report 7101985-5 (Version None)
Quarter: 2010Q4

REPORT INFORMATION
  Report Type: 
  Country: None (occurrence: None)
  Receive Date: 20101115
  Receipt Date: 20101104
  Transmission Date: 20110411
  Serious: Yes (Other)
  Sender: FDA-Public Use
  Company Number: US-ELI_LILLY_AND_COMPANY-US201006006541

PATIENT
  Sex: Male

DRUGS (7)
  1. HUMALOG [Suspect]
     Indication: DIABETES MELLITUS
     Dosage: UNK, AS NEEDED
  2. HUMULIN N [Suspect]
     Indication: DIABETES MELLITUS
     Dosage: UNK, AS NEEDED
  3. HUMULIN 70/30 [Suspect]
     Indication: DIABETES MELLITUS
     Dosage: UNK, AS NEEDED
  4. HUMALOG MIX 50/50 [Suspect]
     Indication: DIABETES MELLITUS
     Dosage: UNK, AS NEEDED
  5. HUMULIN 50/50 [Suspect]
     Indication: DIABETES MELLITUS
     Dosage: UNK, AS NEEDED
  6. HUMULIN 50/50 [Suspect]
     Dosage: UNK, AS NEEDED
  7. ANTIHYPERTENSIVES [Concomitant]
     Indication: HYPERTENSION

REACTIONS (10)
  - BLOOD GLUCOSE DECREASED [None]
  - BLOOD GLUCOSE INCREASED [None]
  - DIABETIC RETINOPATHY [None]
  - DRUG INEFFECTIVE [None]
  - EXPIRED DRUG ADMINISTERED [None]
  - FEELING ABNORMAL [None]
  - INDIFFERENCE [None]
  - MENTAL DISORDER [None]
  - PANCREATIC DISORDER [None]
  - POOR QUALITY DRUG ADMINISTERED [None]
